FAERS Safety Report 7067493-5 (Version None)
Quarter: 2010Q4

REPORT INFORMATION
  Report Type: 
  Country: None (occurrence: None)
  Receive Date: 20101028
  Receipt Date: 20101020
  Transmission Date: 20110411
  Serious: Yes (Hospitalization)
  Sender: FDA-Public Use
  Company Number: US-US-EMD SERONO, INC.-7023436

PATIENT
  Sex: Male

DRUGS (5)
  1. REBIF [Suspect]
     Indication: MULTIPLE SCLEROSIS
     Route: 058
     Dates: start: 20081009, end: 20100901
  2. REBIF [Suspect]
     Route: 058
     Dates: start: 20101020
  3. METHOCARBAMOL [Concomitant]
  4. BACLOFEN [Concomitant]
  5. TIZANIDINE HCL [Concomitant]

REACTIONS (5)
  - AGITATION [None]
  - DEPRESSED MOOD [None]
  - DEPRESSION [None]
  - MICTURITION URGENCY [None]
  - STRESS [None]
